FAERS Safety Report 12772886 (Version 1)
Quarter: 2016Q3

REPORT INFORMATION
  Report Type: Spontaneous
  Country: US (occurrence: US)
  Receive Date: 20160922
  Receipt Date: 20160922
  Transmission Date: 20161109
  Serious: Yes (Hospitalization)
  Sender: FDA-Public Use
  Company Number: US-BEH-2016073648

PATIENT
  Age: 31 Year
  Sex: Male
  Weight: 92.97 kg

DRUGS (20)
  1. SODIUM CHLORIDE. [Concomitant]
     Active Substance: SODIUM CHLORIDE
  2. PROMETHAZINE [Concomitant]
     Active Substance: PROMETHAZINE\PROMETHAZINE HYDROCHLORIDE
  3. STERILE WATER [Concomitant]
     Active Substance: WATER
  4. CIMETIDINE [Concomitant]
     Active Substance: CIMETIDINE
  5. GABAPENTIN. [Concomitant]
     Active Substance: GABAPENTIN
  6. ZOFRAN [Concomitant]
     Active Substance: ONDANSETRON HYDROCHLORIDE
  7. TAGAMET [Concomitant]
     Active Substance: CIMETIDINE
  8. ZOLOFT [Concomitant]
     Active Substance: SERTRALINE HYDROCHLORIDE
  9. BERINERT [Suspect]
     Active Substance: HUMAN C1-ESTERASE INHIBITOR
     Indication: COMPLEMENT FACTOR ABNORMAL
     Dosage: 1500 IU, PRN
     Route: 042
     Dates: start: 20150218
  10. RANITIDINE. [Concomitant]
     Active Substance: RANITIDINE
  11. ACETAMINOPHEN. [Concomitant]
     Active Substance: ACETAMINOPHEN
  12. COMPAZINE [Concomitant]
     Active Substance: PROCHLORPERAZINE MALEATE
  13. IBUPROFEN. [Concomitant]
     Active Substance: IBUPROFEN
  14. MIRTAZAPINE. [Concomitant]
     Active Substance: MIRTAZAPINE
  15. DANAZOL. [Concomitant]
     Active Substance: DANAZOL
  16. PERCOCET                           /00446701/ [Concomitant]
     Active Substance: ACETAMINOPHEN\OXYCODONE HYDROCHLORIDE\OXYCODONE TEREPHTHALATE
  17. TRAMADOL. [Concomitant]
     Active Substance: TRAMADOL
  18. EPIPEN [Concomitant]
     Active Substance: EPINEPHRINE
  19. OMEPRAZOLE. [Concomitant]
     Active Substance: OMEPRAZOLE
  20. OLANZAPINE. [Concomitant]
     Active Substance: OLANZAPINE

REACTIONS (2)
  - Sepsis [Unknown]
  - Angioedema [Unknown]

NARRATIVE: CASE EVENT DATE: 20160905
